FAERS Safety Report 4795039-0 (Version None)
Quarter: 2005Q4

REPORT INFORMATION
  Report Type: 
  Country: None (occurrence: None)
  Receive Date: 20051006
  Receipt Date: 20050919
  Transmission Date: 20060501
  Serious: Yes (Death)
  Sender: FDA-Public Use
  Company Number: AND_0208_2005

PATIENT
  Age: 19 Year
  Sex: 0

DRUGS (2)
  1. ACETAMINOPHEN/HYDROCODONE [Suspect]
     Dosage: DF PO
     Route: 048
  2. TRAZODONE HCL [Suspect]
     Dosage: DF PO
     Route: 048

REACTIONS (5)
  - CARDIAC ARREST [None]
  - COMPLETED SUICIDE [None]
  - MULTIPLE DRUG OVERDOSE [None]
  - OVERDOSE [None]
  - RESPIRATORY ARREST [None]
